FAERS Safety Report 4732407-7 (Version None)
Quarter: 2005Q3

REPORT INFORMATION
  Report Type: 
  Country: None (occurrence: None)
  Receive Date: 20050801
  Receipt Date: 20050722
  Transmission Date: 20060218
  Serious: Yes (Hospitalization, Other)
  Sender: FDA-Public Use
  Company Number: KII-2005-0017721

PATIENT
  Age: 31 Year
  Sex: Female

DRUGS (4)
  1. OXYCONTIN [Suspect]
     Indication: DRUG USE FOR UNKNOWN INDICATION
     Dosage: INTRAVENOUS
     Route: 042
  2. COCAINE (COCAINE) [Suspect]
     Indication: DRUG USE FOR UNKNOWN INDICATION
  3. ACETAMINOPHEN AND HYDROCODONE BITARTRATE [Suspect]
     Indication: DRUG USE FOR UNKNOWN INDICATION
     Dosage: INTRAVENOUS
     Route: 042
  4. SALICYLIC ACID PREPARATIONS (SALICYLIC ACID PREPARATIONS) [Suspect]
     Indication: DRUG USE FOR UNKNOWN INDICATION

REACTIONS (15)
  - BLOOD CREATINE PHOSPHOKINASE INCREASED [None]
  - BLOOD LACTATE DEHYDROGENASE INCREASED [None]
  - BLOOD PRESSURE DECREASED [None]
  - BLOOD PRESSURE INCREASED [None]
  - BLOOD URINE PRESENT [None]
  - COMPARTMENT SYNDROME [None]
  - CRYSTAL URINE PRESENT [None]
  - CULTURE WOUND POSITIVE [None]
  - GLUCOSE URINE PRESENT [None]
  - NECROSIS [None]
  - POLYSUBSTANCE ABUSE [None]
  - PROTEIN URINE PRESENT [None]
  - RESPIRATORY RATE INCREASED [None]
  - URINE ANALYSIS ABNORMAL [None]
  - WHITE BLOOD CELL COUNT INCREASED [None]
